FAERS Safety Report 9624644 (Version 2)
Quarter: 2013Q4

REPORT INFORMATION
  Report Type: Spontaneous
  Country: US (occurrence: US)
  Receive Date: 20131015
  Receipt Date: 20131031
  Transmission Date: 20140711
  Serious: Yes (Death, Other)
  Sender: FDA-Public Use
  Company Number: US-FRI-1000049885

PATIENT
  Age: 77 Year
  Sex: Male
  Weight: 57 kg

DRUGS (7)
  1. DALIRESP [Suspect]
     Indication: CHRONIC OBSTRUCTIVE PULMONARY DISEASE
     Dates: start: 20120726
  2. PREDNISONE [Concomitant]
     Dosage: 40 MG
     Route: 048
     Dates: start: 20130614, end: 2013
  3. PREDNISONE [Concomitant]
     Dosage: 20 MG
     Route: 048
     Dates: start: 2013
  4. SYMBICORT [Concomitant]
     Dosage: 160/4.5
     Route: 055
     Dates: start: 201012
  5. DULERA [Concomitant]
     Dosage: 400 MCG
     Route: 048
     Dates: start: 201012
  6. SPIRIVA [Concomitant]
     Dosage: 18 MCG
     Route: 055
     Dates: start: 201012
  7. ALBUTEROL [Concomitant]
     Dosage: 2.5 MG

REACTIONS (3)
  - Chronic obstructive pulmonary disease [Unknown]
  - Hip fracture [Unknown]
  - Chronic obstructive pulmonary disease [Fatal]
